FAERS Safety Report 9719041 (Version 1)
Quarter: 2013Q4

REPORT INFORMATION
  Report Type: Report from Study
  Country: CA (occurrence: CA)
  Receive Date: 20131127
  Receipt Date: 20131127
  Transmission Date: 20140711
  Serious: Yes (Other)
  Sender: FDA-Public Use
  Company Number: CA-PFIZER INC-2013334135

PATIENT
  Sex: 0

DRUGS (1)
  1. OXYCODONE HYDROCHLORIDE [Suspect]
     Indication: PAIN
     Dosage: 10 MG, Q2-4H PRN
     Route: 048

REACTIONS (3)
  - Overdose [Unknown]
  - Drug prescribing error [Unknown]
  - Toxicity to various agents [Unknown]
